FAERS Safety Report 20746629 (Version 1)
Quarter: 2022Q2

REPORT INFORMATION
  Report Type: Spontaneous
  Country: US (occurrence: None)
  Receive Date: 20220425
  Receipt Date: 20220425
  Transmission Date: 20220721
  Serious: Yes (Disabling)
  Sender: FDA-Public Use
  Company Number: None

PATIENT
  Age: 22 Year
  Sex: Female
  Weight: 58.5 kg

DRUGS (2)
  1. NEXPLANON [Suspect]
     Active Substance: ETONOGESTREL
     Indication: Contraception
     Dosage: OTHER QUANTITY : 1 ROD;?OTHER FREQUENCY : IN ARM FOR 4 YEARS;?
     Route: 058
     Dates: start: 20180402, end: 20220412
  2. VITAMIN D [Concomitant]
     Active Substance: VITAMIN D NOS

REACTIONS (4)
  - Gluten sensitivity [None]
  - Food allergy [None]
  - Depressed level of consciousness [None]
  - Anxiety [None]

NARRATIVE: CASE EVENT DATE: 20180409
